FAERS Safety Report 8174203-7 (Version None)
Quarter: 2012Q1

REPORT INFORMATION
  Report Type: 
  Country: None (occurrence: None)
  Receive Date: 20120229
  Receipt Date: 20120223
  Transmission Date: 20120608
  Serious: Yes (Death, Other)
  Sender: FDA-Public Use
  Company Number: US-BAYER-2011-005974

PATIENT
  Age: 50 Year
  Sex: Female
  Weight: 104.31 kg

DRUGS (15)
  1. CAPTOPRIL [Concomitant]
     Dosage: 6.25 MG, TID
     Route: 048
  2. HEPARIN [Concomitant]
     Dosage: 27,000 UNITS
     Route: 042
     Dates: start: 20030209
  3. TRASYLOL [Suspect]
     Indication: CORONARY ARTERY BYPASS
     Dosage: UNK
     Route: 042
     Dates: start: 20030211
  4. COREG [Concomitant]
     Dosage: 3.125 MG, BID
     Route: 048
  5. HUMULIN R [Concomitant]
     Dosage: SLIDING SCALE
     Route: 058
  6. PROTAMINE SULFATE [Concomitant]
     Dosage: 100MG
     Route: 042
     Dates: start: 20030211, end: 20030211
  7. PRAVACHOL [Concomitant]
     Dosage: 20MG
     Route: 048
  8. FENTANYL [Concomitant]
  9. NITROGLYCERIN [Concomitant]
     Dosage: TITRATED DRIP
     Route: 042
     Dates: start: 20030206
  10. AMIODARONE HCL [Concomitant]
     Dosage: 150MG
     Route: 042
     Dates: start: 20030211, end: 20030211
  11. TRASYLOL [Suspect]
     Indication: MITRAL VALVE REPAIR
     Dosage: UNK
  12. LASIX [Concomitant]
     Dosage: 60 MG, BID
     Route: 042
     Dates: start: 20030211
  13. PEPCID [Concomitant]
     Route: 042
  14. MANNITOL [Concomitant]
     Dosage: 12.5GM
     Route: 042
     Dates: start: 20030211, end: 20030211
  15. ACETYLSALICYLIC ACID SRT [Concomitant]
     Dosage: 325 MG, QD
     Route: 048

REACTIONS (13)
  - EMOTIONAL DISTRESS [None]
  - ANXIETY [None]
  - STRESS [None]
  - DEATH [None]
  - MULTI-ORGAN FAILURE [None]
  - UNEVALUABLE EVENT [None]
  - ANHEDONIA [None]
  - RENAL IMPAIRMENT [None]
  - PAIN [None]
  - FEAR [None]
  - INJURY [None]
  - RENAL FAILURE [None]
  - RENAL INJURY [None]
